FAERS Safety Report 4482984-9 (Version None)
Quarter: 2004Q4

REPORT INFORMATION
  Report Type: 
  Country: None (occurrence: None)
  Receive Date: 20041022
  Receipt Date: 20041015
  Transmission Date: 20050328
  Serious: Yes (Disabling)
  Sender: FDA-Public Use
  Company Number: US-MERCK-0410USA02378

PATIENT
  Age: 86 Year
  Sex: Female

DRUGS (4)
  1. HYZAAR [Suspect]
     Indication: HYPERTENSION
     Route: 048
     Dates: start: 20020101, end: 20040901
  2. ADVAIR DISKUS 100/50 [Concomitant]
     Route: 065
  3. SYNTHROID [Concomitant]
     Route: 065
  4. SINGULAIR [Concomitant]
     Route: 048

REACTIONS (4)
  - DYSPHAGIA [None]
  - DYSPNOEA [None]
  - EATING DISORDER [None]
  - OBSTRUCTIVE AIRWAYS DISORDER [None]
